FAERS Safety Report 21065900 (Version 1)
Quarter: 2022Q3

REPORT INFORMATION
  Report Type: Spontaneous
  Country: US (occurrence: US)
  Receive Date: 20220711
  Receipt Date: 20220711
  Transmission Date: 20221026
  Serious: No
  Sender: FDA-Public Use
  Company Number: US-PFIZER INC-202200938369

PATIENT
  Age: 44 Year
  Sex: Male

DRUGS (1)
  1. PAXLOVID [Suspect]
     Active Substance: NIRMATRELVIR\RITONAVIR
     Indication: COVID-19 treatment
     Dosage: 2 DF (PF-07321332 150MG/RITONAVIR 100MG), 2X/DAY 2 TABLETS IN THE MORNING, THE NEXT TWO THAT NIGHT)
     Route: 048
     Dates: start: 20220705

REACTIONS (2)
  - Product dispensing error [Unknown]
  - Incorrect dose administered [Unknown]

NARRATIVE: CASE EVENT DATE: 20220705
